FAERS Safety Report 4687033-5 (Version None)
Quarter: 2005Q2

REPORT INFORMATION
  Report Type: 
  Country: None (occurrence: None)
  Receive Date: 20050607
  Receipt Date: 20050517
  Transmission Date: 20051028
  Serious: Yes (Hospitalization)
  Sender: FDA-Public Use
  Company Number: F01200401057

PATIENT
  Age: 51 Year
  Sex: Male

DRUGS (8)
  1. (OXALIPLATIN) - SOULTION - 280 MG [Suspect]
     Indication: COLORECTAL CANCER METASTATIC
     Dosage: 280 MG Q3W, INTRAVENOUS
     Route: 042
     Dates: start: 20040219, end: 20040219
  2. CAPECITABINE - TABLET - 2150 MG [Suspect]
     Dosage: 2150 MG FROM D1 TO D15, Q3W, ORAL
     Route: 048
     Dates: start: 20040219, end: 20040303
  3. BEVACIZUMAB [Suspect]
     Dosage: 5 MG/KG OR PALCEBO, INTRAVENOUS NOS
     Route: 042
  4. NIFEDIPINE [Concomitant]
  5. METOPROLOL FUMARATE [Concomitant]
  6. TRAMADOL [Concomitant]
  7. OMEPRAZOLE [Concomitant]
  8. MAALOX (ALUMINIUM HYDROXIDE/CALCIUM CARBONATE/MAGNESIUM HYDROXIDE) [Concomitant]

REACTIONS (10)
  - BLOOD CALCIUM DECREASED [None]
  - BLOOD POTASSIUM DECREASED [None]
  - DEPRESSION [None]
  - DIARRHOEA [None]
  - FATIGUE [None]
  - FEBRILE NEUTROPENIA [None]
  - GENERAL PHYSICAL HEALTH DETERIORATION [None]
  - MICROCOCCUS INFECTION [None]
  - PANCYTOPENIA [None]
  - STAPHYLOCOCCAL INFECTION [None]
